FAERS Safety Report 5287400-5 (Version None)
Quarter: 2007Q1

REPORT INFORMATION
  Report Type: 
  Country: None (occurrence: None)
  Receive Date: 20070116
  Receipt Date: 20061102
  Transmission Date: 20070707
  Serious: No
  Sender: FDA-Public Use
  Company Number: 2006SP003894

PATIENT
  Age: 66 Year
  Sex: Female
  Weight: 44.9061 kg

DRUGS (6)
  1. LUNESTA [Suspect]
     Indication: INSOMNIA
     Dosage: ORAL
     Route: 048
     Dates: start: 20061001, end: 20061001
  2. CELEXA [Concomitant]
  3. XANAX [Concomitant]
  4. SYNTHROID [Concomitant]
  5. PANTOPRAZOLE [Concomitant]
  6. ESTROGENS CONJUGATED [Concomitant]

REACTIONS (1)
  - DYSGEUSIA [None]
